FAERS Safety Report 4979495-0 (Version None)
Quarter: 2006Q2

REPORT INFORMATION
  Report Type: 
  Country: None (occurrence: None)
  Receive Date: 20060418
  Receipt Date: 20060410
  Transmission Date: 20061013
  Serious: No
  Sender: FDA-Public Use
  Company Number: 028-20785-06040423

PATIENT
  Age: 71 Year
  Sex: Male

DRUGS (8)
  1. THALOMID [Suspect]
     Indication: MYELOFIBROSIS
     Dosage: 50 MG, DAILY, ORAL
     Route: 048
     Dates: start: 20060301
  2. NITRO PATCH (GLYCERYL TRINITRATE) (POULTICE OR PATCH) [Concomitant]
  3. PROPRANOLOL [Concomitant]
  4. URSODIOL (URSODEOXYCHOLIC ACID) [Concomitant]
  5. ATORVASTATIN CALCIUM [Concomitant]
  6. HUMALOG [Concomitant]
  7. FUROSEMIDE [Concomitant]
  8. PREDNISONE TAB [Concomitant]

REACTIONS (1)
  - RECTAL HAEMORRHAGE [None]
